FAERS Safety Report 24245958 (Version 1)
Quarter: 2024Q3

REPORT INFORMATION
  Report Type: Spontaneous
  Country: AU (occurrence: AU)
  Receive Date: 20240824
  Receipt Date: 20240824
  Transmission Date: 20241016
  Serious: Yes (Hospitalization)
  Sender: CELLTRION
  Company Number: AU-PFIZER INC-PV202400108282

PATIENT

DRUGS (4)
  1. INFLIXIMAB [Suspect]
     Active Substance: INFLIXIMAB
     Indication: Crohn^s disease
     Dosage: 5 MG/KG, 8 WEEKLY
     Route: 042
     Dates: start: 202211
  2. INFLIXIMAB [Suspect]
     Active Substance: INFLIXIMAB
     Dosage: REINDUCITON 10MG/KG Q6W
     Route: 042
     Dates: start: 202402
  3. INFLIXIMAB [Suspect]
     Active Substance: INFLIXIMAB
     Dosage: 5 MG/KG, 6 WEEKLY
     Route: 042
     Dates: start: 202402
  4. AZATHIOPRINE [Concomitant]
     Active Substance: AZATHIOPRINE
     Dosage: 150 MG
     Dates: start: 202203

REACTIONS (4)
  - Condition aggravated [Unknown]
  - Drug ineffective [Unknown]
  - Drug level decreased [Unknown]
  - Off label use [Unknown]
